FAERS Safety Report 6151259-4 (Version None)
Quarter: 2009Q2

REPORT INFORMATION
  Report Type: 
  Country: None (occurrence: None)
  Receive Date: 20090410
  Receipt Date: 20090401
  Transmission Date: 20091009
  Serious: Yes (Disabling, Other)
  Sender: FDA-Public Use
  Company Number: CA-PFIZER INC-2009177073

PATIENT

DRUGS (7)
  1. CELSENTRI [Suspect]
     Indication: HIV INFECTION
     Dosage: 150 MG, 2X/DAY
     Route: 048
     Dates: start: 20080101, end: 20090126
  2. RALTEGRAVIR [Suspect]
     Indication: HIV INFECTION
     Dosage: 400 MG, 2X/DAY
     Route: 048
     Dates: start: 20080101, end: 20090126
  3. ETRAVIRINE [Suspect]
     Indication: HIV INFECTION
     Dosage: 200 MG, 2X/DAY
     Route: 048
     Dates: start: 20080101, end: 20090126
  4. DARUNAVIR [Suspect]
     Indication: HIV INFECTION
     Dosage: 600 MG, 2X/DAY
     Route: 048
     Dates: start: 20080101, end: 20090126
  5. COMBIVIR [Suspect]
     Indication: HIV INFECTION
     Dosage: UNK
     Route: 048
     Dates: start: 20080101, end: 20090126
  6. RITONAVIR [Suspect]
     Indication: HIV INFECTION
     Dosage: 100 MG, 2X/DAY
     Route: 048
     Dates: start: 20080101, end: 20090126
  7. CHAMPIX [Concomitant]
     Indication: SMOKING CESSATION THERAPY
     Dosage: UNK

REACTIONS (2)
  - BLOOD CREATINE PHOSPHOKINASE INCREASED [None]
  - MYOSITIS [None]
